FAERS Safety Report 7337647-9 (Version None)
Quarter: 2011Q1

REPORT INFORMATION
  Report Type: 
  Country: None (occurrence: None)
  Receive Date: 20110308
  Receipt Date: 20110222
  Transmission Date: 20110831
  Serious: Yes (Hospitalization, Other)
  Sender: FDA-Public Use
  Company Number: US-BAYER-201030152NA

PATIENT
  Sex: Female
  Weight: 68.027 kg

DRUGS (11)
  1. ZOLOFT [Concomitant]
     Indication: DEPRESSION
  2. MOTRIN [Concomitant]
     Indication: ANTIINFLAMMATORY THERAPY
     Dosage: UNK UNK, PRN
  3. SERTRALINE [Concomitant]
     Dosage: 50 MG, UNK
     Route: 048
     Dates: start: 20100302
  4. NITROFURANTOIN [Concomitant]
     Dosage: 100 MG, UNK
     Route: 048
     Dates: start: 20100615
  5. OCELLA [Suspect]
     Indication: PRODUCT USED FOR UNKNOWN INDICATION
     Dosage: UNK
  6. CIPROFLOXACIN [Concomitant]
     Dosage: 500 MG, UNK
     Route: 048
     Dates: start: 20101005
  7. METHYLPREDNISOLONE [Concomitant]
     Dosage: 4 MG, UNK
     Route: 048
     Dates: start: 20101022
  8. HYDROCORTONE [Concomitant]
     Dosage: 30 G, UNK
     Route: 061
     Dates: start: 20101022
  9. YASMIN [Suspect]
     Indication: PRODUCT USED FOR UNKNOWN INDICATION
     Dosage: UNK
     Dates: start: 20050101, end: 20080101
  10. YAZ [Suspect]
     Indication: PRODUCT USED FOR UNKNOWN INDICATION
     Dosage: UNK
  11. ZOLOFT [Concomitant]
     Indication: ANXIETY
     Dosage: 50 MG, UNK
     Route: 048
     Dates: start: 19950101

REACTIONS (8)
  - DYSPNOEA PAROXYSMAL NOCTURNAL [None]
  - DYSPNOEA EXERTIONAL [None]
  - COUGH [None]
  - PULMONARY EMBOLISM [None]
  - CHEST PAIN [None]
  - THROMBOSIS [None]
  - ORTHOPNOEA [None]
  - DYSPNOEA [None]
